FAERS Safety Report 15926731 (Version 1)
Quarter: 2019Q1

REPORT INFORMATION
  Report Type: Spontaneous
  Country: US (occurrence: US)
  Receive Date: 20190206
  Receipt Date: 20190206
  Transmission Date: 20190417
  Serious: Yes (Hospitalization)
  Sender: FDA-Public Use
  Company Number: None

PATIENT
  Age: 30 Year
  Sex: Female
  Weight: 62.1 kg

DRUGS (1)
  1. SODIUM OXYBATE. [Suspect]
     Active Substance: SODIUM OXYBATE

REACTIONS (5)
  - Subdural haemorrhage [None]
  - Head injury [None]
  - Subarachnoid haemorrhage [None]
  - Fall [None]
  - Skull fractured base [None]

NARRATIVE: CASE EVENT DATE: 20190205
